FAERS Safety Report 4959306-X (Version None)
Quarter: 2006Q1

REPORT INFORMATION
  Report Type: 
  Country: None (occurrence: None)
  Receive Date: 20060331
  Receipt Date: 20060320
  Transmission Date: 20060701
  Serious: Yes (Other)
  Sender: FDA-Public Use
  Company Number: DE-JNJFOC-20060305531

PATIENT
  Age: 25 Year
  Sex: Female

DRUGS (9)
  1. HALDOL [Suspect]
     Indication: DRUG USE FOR UNKNOWN INDICATION
     Route: 042
  2. SEROQUEL [Suspect]
     Dosage: 200 - 1000 MG
     Route: 048
  3. SEROQUEL [Suspect]
     Indication: DRUG USE FOR UNKNOWN INDICATION
     Route: 048
  4. CIATYL Z ACUPHASE [Suspect]
     Indication: DRUG USE FOR UNKNOWN INDICATION
     Route: 030
  5. VALPROATE SODIUM [Concomitant]
     Route: 048
  6. VALPROATE SODIUM [Concomitant]
     Route: 048
  7. VALPROATE SODIUM [Concomitant]
     Route: 048
  8. LITHIUM CARBONATE [Concomitant]
     Route: 048
  9. DIAZEPAM [Concomitant]
     Route: 042

REACTIONS (6)
  - BLOOD CREATINE PHOSPHOKINASE INCREASED [None]
  - CATATONIA [None]
  - DYSPHAGIA [None]
  - EXTRAPYRAMIDAL DISORDER [None]
  - PNEUMONIA [None]
  - PSYCHOTIC DISORDER [None]
